FAERS Safety Report 8557709-8 (Version None)
Quarter: 2012Q3

REPORT INFORMATION
  Report Type: 
  Country: None (occurrence: None)
  Receive Date: 20120801
  Receipt Date: 20120728
  Transmission Date: 20120928
  Serious: No
  Sender: FDA-Public Use
  Company Number: US-PFIZER INC-2012182976

PATIENT
  Sex: Female

DRUGS (1)
  1. IBUPROFEN (ADVIL) [Suspect]
     Indication: CHEST PAIN
     Dosage: 200 MG, 2X/DAY
     Route: 048
     Dates: start: 20120726, end: 20120726

REACTIONS (3)
  - RASH PRURITIC [None]
  - PRURITUS [None]
  - RASH [None]
